FAERS Safety Report 8577443-8 (Version None)
Quarter: 2012Q3

REPORT INFORMATION
  Report Type: 
  Country: None (occurrence: None)
  Receive Date: 20120807
  Receipt Date: 20120801
  Transmission Date: 20120928
  Serious: Yes (Hospitalization, Other)
  Sender: FDA-Public Use
  Company Number: PHHY2012FR067393

PATIENT
  Sex: Female

DRUGS (13)
  1. FOLIC ACID [Concomitant]
  2. MIDODRINE HYDROCHLORIDE [Concomitant]
     Dates: start: 20030101
  3. PROCARBAZINE HYDROCHLORIDE [Concomitant]
  4. VALACYCLOVIR HYDROCHLORIDE [Concomitant]
     Dates: start: 20120101
  5. ATARAX [Concomitant]
  6. VINCRISTINE [Concomitant]
  7. DOXORUBICIN HYDROCHLORIDE [Suspect]
     Indication: HODGKIN'S DISEASE
     Dosage: 25 MG/M2, 1 TIMES PER 1 CYCLE
     Route: 042
     Dates: start: 20120118, end: 20120523
  8. DACARBAZINE [Suspect]
     Indication: HODGKIN'S DISEASE
     Dosage: 375 MG/M2, 1 TIME PER 1 CYCLE
     Dates: start: 20120229, end: 20120523
  9. ETOPOSIDE [Concomitant]
  10. BLEOMYCIN SULFATE [Suspect]
     Indication: HODGKIN'S DISEASE
     Dosage: 10 MG/M2,1 TIMES PER 1 CYCLE
     Route: 042
     Dates: start: 20120118, end: 20120523
  11. VINBLASTINE SULFATE [Suspect]
     Indication: HODGKIN'S DISEASE
     Dosage: 6 MG/M2, 1 TIME PER 1 CYCLE
     Route: 042
     Dates: start: 20120229, end: 20120523
  12. CYCLOPHOSPHAMIDE [Concomitant]
  13. PREDNISONE [Concomitant]

REACTIONS (7)
  - RESTRICTIVE PULMONARY DISEASE [None]
  - DYSPNOEA [None]
  - ASTHENIA [None]
  - PULMONARY ARTERIAL HYPERTENSION [None]
  - VENOOCCLUSIVE DISEASE [None]
  - INTERSTITIAL LUNG DISEASE [None]
  - LUNG DISORDER [None]
